FAERS Safety Report 9473162 (Version 1)
Quarter: 2013Q3

REPORT INFORMATION
  Report Type: Spontaneous
  Country: US (occurrence: US)
  Receive Date: 20130823
  Receipt Date: 20130823
  Transmission Date: 20140515
  Serious: No
  Sender: FDA-Public Use
  Company Number: US-BRISTOL-MYERS SQUIBB COMPANY-18707919

PATIENT
  Age: 45 Year
  Sex: Male
  Weight: 83.9 kg

DRUGS (2)
  1. SPRYCEL (CML) TABS 100 MG [Suspect]
     Dates: start: 20130221
  2. MUCINEX [Concomitant]

REACTIONS (1)
  - Fatigue [Unknown]
